FAERS Safety Report 9175116 (Version 1)
Quarter: 2013Q1

REPORT INFORMATION
  Report Type: Spontaneous
  Country: PL (occurrence: None)
  Receive Date: 20130315
  Receipt Date: 20130315
  Transmission Date: 20140127
  Serious: Yes (Other)
  Sender: FDA-Public Use
  Company Number: 2013-04228

PATIENT
  Age: 83 Year
  Sex: Female

DRUGS (5)
  1. GABAPENTIN [Suspect]
     Indication: PRODUCT USED FOR UNKNOWN INDICATION
     Route: 048
     Dates: start: 20121031, end: 20121107
  2. EFFERALGAN CODEINE [Concomitant]
  3. INDIX [Concomitant]
  4. METOPROLOL [Concomitant]
  5. KALIPOZ [Concomitant]

REACTIONS (4)
  - Face oedema [None]
  - Eyelid oedema [None]
  - Nausea [None]
  - Dizziness [None]
